FAERS Safety Report 16058307 (Version 3)
Quarter: 2019Q2

REPORT INFORMATION
  Report Type: Spontaneous
  Country: US (occurrence: US)
  Receive Date: 20190311
  Receipt Date: 20190503
  Transmission Date: 20190711
  Serious: Yes (Hospitalization, Other)
  Sender: FDA-Public Use
  Company Number: US-ASTRAZENECA-2018SF48355

PATIENT
  Age: 23484 Day
  Sex: Male

DRUGS (29)
  1. HYDROCHLOROTHIAZIDE. [Concomitant]
     Active Substance: HYDROCHLOROTHIAZIDE
  2. PLAVIX [Concomitant]
     Active Substance: CLOPIDOGREL BISULFATE
  3. SIMVASTATIN. [Concomitant]
     Active Substance: SIMVASTATIN
  4. PRILOSEC [Suspect]
     Active Substance: OMEPRAZOLE MAGNESIUM
     Route: 048
  5. AMLODIPINE [Concomitant]
     Active Substance: AMLODIPINE BESYLATE
  6. INSULIN [Concomitant]
     Active Substance: INSULIN NOS
  7. PROMETHAZINE [Concomitant]
     Active Substance: PROMETHAZINE\PROMETHAZINE HYDROCHLORIDE
  8. PROTONIX [Suspect]
     Active Substance: PANTOPRAZOLE SODIUM
     Indication: GASTROOESOPHAGEAL REFLUX DISEASE
     Dosage: GENERIC
     Route: 065
     Dates: start: 20151013
  9. FENOFIBRATE. [Concomitant]
     Active Substance: FENOFIBRATE
  10. ACETAMINOPHEN. [Concomitant]
     Active Substance: ACETAMINOPHEN
  11. ONDANSETRON [Concomitant]
     Active Substance: ONDANSETRON
  12. CILOSTAZOL. [Concomitant]
     Active Substance: CILOSTAZOL
  13. ASPIRIN. [Concomitant]
     Active Substance: ASPIRIN
  14. ATORVASTATIN [Concomitant]
     Active Substance: ATORVASTATIN
  15. GLIMEPIRIDE. [Concomitant]
     Active Substance: GLIMEPIRIDE
  16. GLUCAGON. [Concomitant]
     Active Substance: GLUCAGON
  17. JANUVIA [Concomitant]
     Active Substance: SITAGLIPTIN PHOSPHATE
  18. PRILOSEC OTC [Suspect]
     Active Substance: OMEPRAZOLE MAGNESIUM
     Indication: GASTROOESOPHAGEAL REFLUX DISEASE
     Route: 048
     Dates: start: 2003, end: 2015
  19. LEVEMIR [Concomitant]
     Active Substance: INSULIN DETEMIR
  20. LISINOPRIL. [Concomitant]
     Active Substance: LISINOPRIL
  21. PIOGLITAZONE. [Concomitant]
     Active Substance: PIOGLITAZONE
  22. LOVAZA [Concomitant]
     Active Substance: OMEGA-3-ACID ETHYL ESTERS
  23. ADVAIR DISKUS [Concomitant]
     Active Substance: FLUTICASONE PROPIONATE\SALMETEROL XINAFOATE
  24. PROTONIX [Suspect]
     Active Substance: PANTOPRAZOLE SODIUM
     Indication: GASTROOESOPHAGEAL REFLUX DISEASE
     Route: 065
  25. ATENOLOL. [Concomitant]
     Active Substance: ATENOLOL
  26. PANTOPRAZOLE [Concomitant]
     Active Substance: PANTOPRAZOLE
     Route: 065
  27. RANITIDINE. [Concomitant]
     Active Substance: RANITIDINE
  28. PIOGLITAZONE. [Concomitant]
     Active Substance: PIOGLITAZONE
  29. METFORMIN [Concomitant]
     Active Substance: METFORMIN HYDROCHLORIDE

REACTIONS (3)
  - Acute kidney injury [Unknown]
  - Chronic kidney disease [Not Recovered/Not Resolved]
  - Renal failure [Unknown]

NARRATIVE: CASE EVENT DATE: 20180628
